FAERS Safety Report 8338886-0 (Version None)
Quarter: 2012Q2

REPORT INFORMATION
  Report Type: 
  Country: None (occurrence: None)
  Receive Date: 20120506
  Receipt Date: 20120426
  Transmission Date: 20120825
  Serious: Yes (Hospitalization)
  Sender: FDA-Public Use
  Company Number: JP-VERTEX PHARMACEUTICALS INC.-AE-2012-006173

PATIENT
  Age: 66 Year
  Sex: Male

DRUGS (4)
  1. RIBAVIRIN [Concomitant]
     Route: 048
  2. TELAVIC (TELAPREVIR) [Suspect]
     Route: 048
  3. PEGINTERFERON ALFA-2B [Concomitant]
     Route: 051
  4. TELAVIC (TELAPREVIR) [Suspect]
     Route: 048

REACTIONS (2)
  - RENAL IMPAIRMENT [None]
  - ANAEMIA [None]
